FAERS Safety Report 25721230 (Version 1)
Quarter: 2025Q3

REPORT INFORMATION
  Report Type: Spontaneous
  Country: US (occurrence: US)
  Receive Date: 20250825
  Receipt Date: 20250825
  Transmission Date: 20251021
  Serious: Yes (Hospitalization, Other)
  Sender: BAYER HEALTHCARE PHARMACEUTICALS INC.
  Company Number: US-BAYER-2025A109236

PATIENT
  Age: 74 Year
  Sex: Female
  Weight: 54 kg

DRUGS (21)
  1. ADEMPAS [Suspect]
     Active Substance: RIOCIGUAT
     Indication: Pulmonary arterial hypertension
  2. WINREVAIR [Suspect]
     Active Substance: SOTATERCEPT-CSRK
     Dates: start: 20240824, end: 20240824
  3. REMODULIN [Suspect]
     Active Substance: TREPROSTINIL
     Route: 058
  4. REMODULIN [Suspect]
     Active Substance: TREPROSTINIL
     Route: 042
  5. ATORVASTATIN CALCIUM [Concomitant]
     Active Substance: ATORVASTATIN CALCIUM
  6. COENZYME Q10 [Concomitant]
     Active Substance: DIETARY SUPPLEMENT\UBIDECARENONE
  7. POTASSIUM CHLORIDE [Concomitant]
     Active Substance: POTASSIUM CHLORIDE
  8. PENICILLIN G POTASSIUM [Concomitant]
     Active Substance: PENICILLIN G POTASSIUM
  9. OPSUMIT [Concomitant]
     Active Substance: MACITENTAN
  10. LASIX [Concomitant]
     Active Substance: FUROSEMIDE
  11. FISH OIL [Concomitant]
     Active Substance: FISH OIL
  12. MAGNESIUM [Concomitant]
     Active Substance: MAGNESIUM
  13. PFIZER-BIONTECH COVID-19 VACCINE [Concomitant]
     Active Substance: TOZINAMERAN
  14. IRON [Concomitant]
     Active Substance: IRON
  15. LINEZOLID [Concomitant]
     Active Substance: LINEZOLID
  16. HERBALS\TURMERIC [Concomitant]
     Active Substance: HERBALS\TURMERIC
  17. ASPIRIN [Concomitant]
     Active Substance: ASPIRIN
  18. VITAMIN D3 [Concomitant]
     Active Substance: CHOLECALCIFEROL
  19. OMEPRAZOLE [Concomitant]
     Active Substance: OMEPRAZOLE
  20. Glucosamine chondroitin msm [Concomitant]
  21. BACTRIM [Concomitant]
     Active Substance: SULFAMETHOXAZOLE\TRIMETHOPRIM

REACTIONS (14)
  - Gastrointestinal pain [Unknown]
  - Skin cancer [None]
  - Dehydration [None]
  - General physical health deterioration [None]
  - Malnutrition [None]
  - Illness [None]
  - Dizziness [Not Recovered/Not Resolved]
  - Headache [Unknown]
  - Nausea [Unknown]
  - Food poisoning [Unknown]
  - Pyrexia [Unknown]
  - Diarrhoea [None]
  - Asthenia [None]
  - Infusion site inflammation [None]
